FAERS Safety Report 4851758-9 (Version None)
Quarter: 2005Q4

REPORT INFORMATION
  Report Type: 
  Country: None (occurrence: None)
  Receive Date: 20051209
  Receipt Date: 20051124
  Transmission Date: 20060501
  Serious: Yes (Other)
  Sender: FDA-Public Use
  Company Number: S05-CAN-05616-01

PATIENT
  Age: 51 Year
  Sex: Female

DRUGS (1)
  1. CELEXA [Suspect]
     Dosage: 20 MG QD; PO
     Route: 048

REACTIONS (5)
  - AMNESIA [None]
  - ANGER [None]
  - DISTURBANCE IN ATTENTION [None]
  - DYSKINESIA [None]
  - ELECTRIC SHOCK [None]
